FAERS Safety Report 14253652 (Version 4)
Quarter: 2019Q1

REPORT INFORMATION
  Report Type: Spontaneous
  Country: US (occurrence: US)
  Receive Date: 20171206
  Receipt Date: 20190220
  Transmission Date: 20190417
  Serious: Yes (Other)
  Sender: FDA-Public Use
  Company Number: US-BRISTOL-MYERS SQUIBB COMPANY-BMS-2017-110060

PATIENT
  Age: 66 Year
  Sex: Female
  Weight: 85.26 kg

DRUGS (1)
  1. ORENCIA [Suspect]
     Active Substance: ABATACEPT
     Indication: RHEUMATOID ARTHRITIS
     Dosage: 125 MG, QWK
     Route: 058
     Dates: start: 201411

REACTIONS (6)
  - Thrombosis [Unknown]
  - Superficial injury of eye [Unknown]
  - Pneumonia [Unknown]
  - Eye disorder [Unknown]
  - Drug ineffective [Unknown]
  - Rhinovirus infection [Unknown]

NARRATIVE: CASE EVENT DATE: 201809
